FAERS Safety Report 4338632-1 (Version None)
Quarter: 2004Q2

REPORT INFORMATION
  Report Type: 
  Country: None (occurrence: None)
  Receive Date: 20040414
  Receipt Date: 20040402
  Transmission Date: 20050107
  Serious: Yes (Hospitalization)
  Sender: FDA-Public Use
  Company Number: NL-BRISTOL-MYERS SQUIBB COMPANY-12549903

PATIENT
  Age: 44 Year
  Sex: Male

DRUGS (5)
  1. ATAZANAVIR [Interacting]
     Indication: HIV INFECTION
     Route: 048
     Dates: start: 20031201
  2. INVIRASE [Interacting]
     Dates: start: 20040310, end: 20040325
  3. RITONAVIR [Suspect]
     Indication: HIV INFECTION
     Dates: start: 20031201
  4. ENFUVIRTIDE [Concomitant]
     Route: 058
     Dates: start: 20020722
  5. DIDANOSINE [Concomitant]
     Dates: start: 20020102

REACTIONS (10)
  - DIABETES MELLITUS [None]
  - DRUG INEFFECTIVE [None]
  - DRUG INTERACTION [None]
  - DRUG TOXICITY [None]
  - GENERAL PHYSICAL HEALTH DETERIORATION [None]
  - GLOMERULONEPHRITIS [None]
  - RENAL COLIC [None]
  - RENAL FAILURE [None]
  - RENAL INTERSTITIAL FIBROSIS [None]
  - RENAL TUBULAR NECROSIS [None]
